FAERS Safety Report 9516417 (Version 2)
Quarter: 2013Q3

REPORT INFORMATION
  Report Type: Spontaneous
  Country: IT (occurrence: IT)
  Receive Date: 20130911
  Receipt Date: 20130916
  Transmission Date: 20140515
  Serious: Yes (Hospitalization)
  Sender: FDA-Public Use
  Company Number: PHHY2013IT097856

PATIENT
  Age: 73 Year
  Sex: Male

DRUGS (4)
  1. LEVOFLOXACIN [Suspect]
     Indication: HYPERPYREXIA
     Dosage: 2 U, QD
     Route: 048
     Dates: start: 20130822, end: 20130828
  2. IDROQUARK [Suspect]
     Indication: HYPERTENSION
     Dosage: 1 U, QD
     Route: 048
     Dates: start: 20060101, end: 20130828
  3. COMPETACT [Concomitant]
  4. LIBRADIN//BARNIDIPINE HYDROCHLORIDE [Concomitant]

REACTIONS (2)
  - Renal failure [Recovering/Resolving]
  - Hypotension [Recovering/Resolving]
